FAERS Safety Report 5811099-X (Version None)
Quarter: 2008Q3

REPORT INFORMATION
  Report Type: 
  Country: None (occurrence: None)
  Receive Date: 20080711
  Receipt Date: 20080612
  Transmission Date: 20090109
  Serious: No
  Sender: FDA-Public Use
  Company Number: 2008BM000119

PATIENT
  Age: 5 Month
  Sex: Female
  Weight: 6.3504 kg

DRUGS (2)
  1. KUVAN [Suspect]
     Indication: PHENYLKETONURIA
     Dosage: 50 MG;QD
     Dates: start: 20080501, end: 20080501
  2. LACTULOSE [Concomitant]

REACTIONS (1)
  - CONSTIPATION [None]
